FAERS Safety Report 7473327-7 (Version None)
Quarter: 2011Q2

REPORT INFORMATION
  Report Type: 
  Country: None (occurrence: None)
  Receive Date: 20110511
  Receipt Date: 20110506
  Transmission Date: 20111010
  Serious: Yes (Hospitalization, Other)
  Sender: FDA-Public Use
  Company Number: BR-ABBOTT-11P-020-0724184-00

PATIENT
  Sex: Female
  Weight: 56 kg

DRUGS (2)
  1. HUMIRA [Suspect]
     Indication: CROHN'S DISEASE
     Route: 058
     Dates: start: 20090301
  2. HUMIRA [Suspect]

REACTIONS (8)
  - VOMITING [None]
  - GASTROINTESTINAL INFLAMMATION [None]
  - APPLICATION SITE DISCOLOURATION [None]
  - APPLICATION SITE URTICARIA [None]
  - NAUSEA [None]
  - INJECTION SITE ERYTHEMA [None]
  - PROCEDURAL PAIN [None]
  - ASTHENIA [None]
